FAERS Safety Report 5110166-6 (Version None)
Quarter: 2006Q3

REPORT INFORMATION
  Report Type: 
  Country: None (occurrence: None)
  Receive Date: 20060921
  Receipt Date: 20060912
  Transmission Date: 20061208
  Serious: Yes (Other)
  Sender: FDA-Public Use
  Company Number: BR-AVENTIS-200614844EU

PATIENT
  Sex: Male
  Weight: 95 kg

DRUGS (5)
  1. LASIX [Suspect]
     Indication: SWELLING
     Dosage: DOSE: 1 TABLET
     Route: 048
  2. LASIX [Suspect]
     Dosage: DOSE: 0.5 TABLET
     Route: 048
  3. LASIX [Suspect]
     Dosage: DOSE: 0.5 TABLET
     Route: 048
  4. LASIX [Suspect]
     Dosage: DOSE: 0.5 TBALET
     Route: 048
     Dates: start: 20060912, end: 20060912
  5. CHONDROITIN [Concomitant]
     Indication: ARTHROPATHY
     Dates: end: 20060810

REACTIONS (4)
  - ANGIONEUROTIC OEDEMA [None]
  - EYELID OEDEMA [None]
  - MUSCLE SPASMS [None]
  - SWELLING FACE [None]
